FAERS Safety Report 6827459-4 (Version None)
Quarter: 2010Q3

REPORT INFORMATION
  Report Type: 
  Country: None (occurrence: None)
  Receive Date: 20100709
  Receipt Date: 20100629
  Transmission Date: 20110219
  Serious: Yes (Life-Threatening, Hospitalization, Disabling)
  Sender: FDA-Public Use
  Company Number: GB-GENENTECH-299596

PATIENT
  Age: 85 Year
  Sex: Male
  Weight: 80 kg

DRUGS (7)
  1. RITUXIMAB [Suspect]
     Indication: RHEUMATOID ARTHRITIS
     Dosage: 2 G, UNK
     Route: 042
     Dates: start: 20091103, end: 20091117
  2. ASPIRIN [Concomitant]
     Indication: MYOCARDIAL ISCHAEMIA
     Dosage: 75 MG, QD
     Route: 048
  3. NICORANDIL [Concomitant]
     Indication: HYPERTENSION
     Dosage: 20 MG, BID
     Route: 048
  4. PLAQUENIL [Concomitant]
     Indication: RHEUMATOID ARTHRITIS
     Dosage: 200 MG, QAM
     Route: 048
  5. SIMVASTATIN [Concomitant]
     Indication: HYPERTENSION
     Dosage: 20 MG, QAM
     Route: 048
  6. ADALAT [Concomitant]
     Indication: MYOCARDIAL ISCHAEMIA
     Dosage: 10 MG, BID
  7. INDAPAMIDE [Concomitant]
     Indication: HYPERTENSION
     Dosage: 1.5 MG, QD

REACTIONS (5)
  - BRADYCARDIA [None]
  - CARDIAC FAILURE CHRONIC [None]
  - CARDIAC FAILURE CONGESTIVE [None]
  - CONGESTIVE CARDIOMYOPATHY [None]
  - PNEUMONIA [None]
